FAERS Safety Report 5416556-6 (Version None)
Quarter: 2007Q3

REPORT INFORMATION
  Report Type: 
  Country: None (occurrence: None)
  Receive Date: 20070814
  Receipt Date: 20070814
  Transmission Date: 20080115
  Serious: Yes (Other)
  Sender: FDA-Public Use
  Company Number: None

PATIENT
  Sex: Female
  Weight: 68.0396 kg

DRUGS (1)
  1. VISINE EYE DROPS [Suspect]
     Indication: OCULAR HYPERAEMIA
     Dosage: 1-2 DROPS AS NEEDED EXTERNAL
     Dates: start: 20070516

REACTIONS (3)
  - CHEMICAL EYE INJURY [None]
  - EYE IRRITATION [None]
  - INSTILLATION SITE REACTION [None]
